FAERS Safety Report 4825938-2 (Version None)
Quarter: 2005Q4

REPORT INFORMATION
  Report Type: 
  Country: None (occurrence: None)
  Receive Date: 20051110
  Receipt Date: 20051110
  Transmission Date: 20060501
  Serious: Yes (Other)
  Sender: FDA-Public Use
  Company Number: None

PATIENT
  Age: 17 Year
  Sex: Male
  Weight: 52.1637 kg

DRUGS (5)
  1. DYNACIN [Suspect]
     Indication: ACNE
     Dosage: 50MG  DAILY  PO
     Route: 048
     Dates: start: 20051101, end: 20051105
  2. SOLU-MEDROL [Concomitant]
  3. PREDNISONE [Concomitant]
  4. ADVIL [Concomitant]
  5. HYDROCORTISONE [Concomitant]

REACTIONS (3)
  - ABASIA [None]
  - JOINT SWELLING [None]
  - RASH GENERALISED [None]
